FAERS Safety Report 4882832-9 (Version None)
Quarter: 2005Q4

REPORT INFORMATION
  Report Type: 
  Country: None (occurrence: None)
  Receive Date: 20051201
  Receipt Date: 20050927
  Transmission Date: 20060501
  Serious: No
  Sender: FDA-Public Use
  Company Number: 2005PV002570

PATIENT
  Age: 62 Year
  Sex: Male
  Weight: 140.6151 kg

DRUGS (5)
  1. BYETTA [Suspect]
     Indication: DIABETES MELLITUS NON-INSULIN-DEPENDENT
     Dosage: SEE IMAGE
     Route: 058
     Dates: start: 20050906, end: 20050919
  2. BYETTA [Suspect]
     Indication: DIABETES MELLITUS NON-INSULIN-DEPENDENT
     Dosage: SEE IMAGE
     Route: 058
     Dates: start: 20050920
  3. GLUCOPHAGE [Concomitant]
  4. LIPITOR [Concomitant]
  5. ACTOS [Concomitant]

REACTIONS (3)
  - ENERGY INCREASED [None]
  - INJECTION SITE PAIN [None]
  - NAUSEA [None]
